FAERS Safety Report 24856889 (Version 1)
Quarter: 2025Q1

REPORT INFORMATION
  Report Type: Spontaneous
  Country: CN (occurrence: CN)
  Receive Date: 20250117
  Receipt Date: 20250117
  Transmission Date: 20250408
  Serious: Yes (Other)
  Sender: PUMA
  Company Number: CN-PUMA BIOTECHNOLOGY, LTD.-2025-PUM-CN000062

PATIENT

DRUGS (6)
  1. NERLYNX [Suspect]
     Active Substance: NERATINIB
     Indication: Breast cancer
     Dosage: 120MG,QD
     Route: 048
     Dates: start: 20231101, end: 20231107
  2. NERLYNX [Suspect]
     Active Substance: NERATINIB
     Dosage: 160MG,QD
     Route: 048
     Dates: start: 20231108, end: 20231114
  3. NERLYNX [Suspect]
     Active Substance: NERATINIB
     Dosage: 240MG,QD
     Route: 048
     Dates: start: 20231115, end: 20231118
  4. NERLYNX [Suspect]
     Active Substance: NERATINIB
     Dosage: 160MG,QD
     Route: 048
     Dates: start: 20231129, end: 20240118
  5. NERLYNX [Suspect]
     Active Substance: NERATINIB
     Dosage: 120MG,QD
     Route: 048
     Dates: start: 20240126, end: 20240622
  6. IMODIUM [Concomitant]
     Active Substance: LOPERAMIDE HYDROCHLORIDE
     Indication: Prophylaxis against diarrhoea
     Route: 048
     Dates: start: 20231101

REACTIONS (3)
  - Hepatic function abnormal [Recovered/Resolved]
  - Diarrhoea [Unknown]
  - Drug titration error [Unknown]

NARRATIVE: CASE EVENT DATE: 20231118
